FAERS Safety Report 16161906 (Version 1)
Quarter: 2019Q2

REPORT INFORMATION
  Report Type: Spontaneous
  Country: US (occurrence: US)
  Receive Date: 20190301
  Receipt Date: 20190301
  Transmission Date: 20190711
  Serious: Yes (Other)
  Sender: FDA-Public Use
  Company Number: None

PATIENT
  Age: 26 Year
  Sex: Male

DRUGS (1)
  1. COSENTYX [Suspect]
     Active Substance: SECUKINUMAB
     Route: 058
     Dates: start: 201801

REACTIONS (4)
  - Influenza [None]
  - Product dose omission [None]
  - Ear infection [None]
  - Sinusitis [None]

NARRATIVE: CASE EVENT DATE: 20190215
